FAERS Safety Report 19744398 (Version 1)
Quarter: 2021Q3

REPORT INFORMATION
  Report Type: Spontaneous
  Country: US (occurrence: US)
  Receive Date: 20210825
  Receipt Date: 20210825
  Transmission Date: 20211014
  Serious: No
  Sender: FDA-Public Use
  Company Number: US-PERRIGO-20US018237

PATIENT
  Age: 62 Year
  Sex: Female
  Weight: 63.49 kg

DRUGS (9)
  1. BICALUTAMIDE. [Concomitant]
     Active Substance: BICALUTAMIDE
     Indication: HORMONE THERAPY
     Dosage: 1.5 TABLETS, QOD
     Route: 065
     Dates: start: 20201111
  2. PROGESTERONE. [Concomitant]
     Active Substance: PROGESTERONE
     Indication: INSOMNIA
  3. EVAMIST [Suspect]
     Active Substance: ESTRADIOL
     Indication: GENDER REASSIGNMENT THERAPY
     Dosage: A LITTLE MORE THAN 4.59 MG, QD
     Route: 062
     Dates: start: 20200817
  4. VITAMIN B12 [Concomitant]
     Active Substance: CYANOCOBALAMIN
     Indication: APHTHOUS ULCER
  5. AZELASTINE. [Concomitant]
     Active Substance: AZELASTINE HYDROCHLORIDE
     Indication: SINUS DISORDER
     Dosage: UNKNOWN, UNKNOWN
     Route: 065
     Dates: start: 202001
  6. PROGESTERONE. [Concomitant]
     Active Substance: PROGESTERONE
     Indication: GENDER REASSIGNMENT THERAPY
     Dosage: 100 MG, NIGHTLY
     Route: 065
     Dates: start: 2016
  7. VITAMIN B12 [Concomitant]
     Active Substance: CYANOCOBALAMIN
     Indication: COELIAC DISEASE
     Dosage: UNKNOWN, UNKNOWN
     Route: 065
     Dates: start: 2014
  8. COENZYME Q10 [Concomitant]
     Active Substance: DIETARY SUPPLEMENT\UBIDECARENONE
     Indication: HYPOVITAMINOSIS
     Dosage: UNKNOWN, UNKNOWN
     Route: 065
     Dates: start: 2014
  9. EVAMIST [Suspect]
     Active Substance: ESTRADIOL
     Indication: PROSTATIC DISORDER
     Dosage: A LITTLE MORE THAN 4.59 MG, QD
     Route: 062
     Dates: start: 20180111, end: 20200814

REACTIONS (4)
  - Product administered at inappropriate site [Not Recovered/Not Resolved]
  - Wrong technique in product usage process [Not Recovered/Not Resolved]
  - Hot flush [Recovered/Resolved]
  - Drug ineffective for unapproved indication [Unknown]

NARRATIVE: CASE EVENT DATE: 20180111
